FAERS Safety Report 8997980 (Version 1)
Quarter: 2013Q1

REPORT INFORMATION
  Report Type: Spontaneous
  Country: US (occurrence: US)
  Receive Date: 20130104
  Receipt Date: 20130104
  Transmission Date: 20140127
  Serious: Yes (Hospitalization)
  Sender: FDA-Public Use
  Company Number: PHEH2013US000523

PATIENT
  Sex: 0

DRUGS (2)
  1. GILENYA [Suspect]
     Dosage: 0.5 MG, QD
     Route: 048
  2. KEPPRA [Concomitant]

REACTIONS (1)
  - Pancytopenia [Recovering/Resolving]
